FAERS Safety Report 11519622 (Version 1)
Quarter: 2015Q3

REPORT INFORMATION
  Report Type: Spontaneous
  Country: US (occurrence: US)
  Receive Date: 20150918
  Receipt Date: 20150918
  Transmission Date: 20151125
  Serious: Yes (Hospitalization, Other)
  Sender: FDA-Public Use
  Company Number: US-BRISTOL-MYERS SQUIBB COMPANY-BMS-2015-062063

PATIENT
  Age: 43 Year
  Sex: Male

DRUGS (1)
  1. WARFARIN SODIUM. [Suspect]
     Active Substance: WARFARIN SODIUM
     Indication: PRODUCT USED FOR UNKNOWN INDICATION
     Dosage: 168 MG, UNK
     Route: 065

REACTIONS (5)
  - Retroperitoneal haematoma [Unknown]
  - Suicide attempt [Unknown]
  - Intentional overdose [Unknown]
  - International normalised ratio increased [Unknown]
  - Epistaxis [Unknown]
